FAERS Safety Report 8160520-3 (Version None)
Quarter: 2012Q1

REPORT INFORMATION
  Report Type: 
  Country: None (occurrence: None)
  Receive Date: 20120223
  Receipt Date: 20120214
  Transmission Date: 20120608
  Serious: Yes (Disabling)
  Sender: FDA-Public Use
  Company Number: BR-ASTRAZENECA-2011SE28033

PATIENT
  Age: 5421 Day
  Sex: Male

DRUGS (5)
  1. SEROQUEL XR [Suspect]
     Indication: BIPOLAR DISORDER
     Route: 048
     Dates: start: 20110201, end: 20110506
  2. SEROQUEL XR [Suspect]
     Route: 048
  3. SEROQUEL XR [Suspect]
     Route: 048
     Dates: start: 20110510, end: 20110501
  4. METFORMIN HCL [Concomitant]
     Indication: METABOLIC ABNORMALITY MANAGEMENT
     Route: 048
     Dates: start: 20110401, end: 20110101
  5. SEROQUEL XR [Suspect]
     Route: 048
     Dates: start: 20110507, end: 20110509

REACTIONS (4)
  - BLUNTED AFFECT [None]
  - AGGRESSION [None]
  - DEPRESSION [None]
  - DECREASED APPETITE [None]
